FAERS Safety Report 11659927 (Version 3)
Quarter: 2016Q1

REPORT INFORMATION
  Report Type: Spontaneous
  Country: DE (occurrence: DE)
  Receive Date: 20151026
  Receipt Date: 20160128
  Transmission Date: 20160525
  Serious: Yes (Life-Threatening, Hospitalization)
  Sender: FDA-Public Use
  Company Number: DE-JNJFOC-20151011128

PATIENT
  Sex: Female
  Weight: 76 kg

DRUGS (1)
  1. STELARA [Suspect]
     Active Substance: USTEKINUMAB
     Indication: PSORIASIS
     Dosage: APPROXIMATE TOTAL NUMBER OF INJECTIONS RECEIVED BY THE PATIENT WERE 2
     Route: 058
     Dates: start: 20150720, end: 20150817

REACTIONS (2)
  - Acute lymphocytic leukaemia [Unknown]
  - Pneumonia [Not Recovered/Not Resolved]

NARRATIVE: CASE EVENT DATE: 2015
